FAERS Safety Report 18594431 (Version 1)
Quarter: 2020Q4

REPORT INFORMATION
  Report Type: Spontaneous
  Country: US (occurrence: US)
  Receive Date: 20201208
  Receipt Date: 20201208
  Transmission Date: 20210114
  Serious: Yes (Other)
  Sender: FDA-Public Use
  Company Number: None

PATIENT
  Age: 81 Year
  Sex: Female
  Weight: 74.8 kg

DRUGS (1)
  1. BAMLANIVIMAB. [Suspect]
     Active Substance: BAMLANIVIMAB
     Indication: COVID-19
     Dosage: ?          OTHER FREQUENCY:ONCE;?
     Route: 041
     Dates: start: 20201129, end: 20201129

REACTIONS (11)
  - Therapy non-responder [None]
  - Headache [None]
  - Fatigue [None]
  - Nausea [None]
  - Hyponatraemia [None]
  - Condition aggravated [None]
  - Vomiting [None]
  - Acute kidney injury [None]
  - Dehydration [None]
  - Pneumonia bacterial [None]
  - Enteritis [None]

NARRATIVE: CASE EVENT DATE: 20201201
